FAERS Safety Report 8844515 (Version 2)
Quarter: 2012Q4

REPORT INFORMATION
  Report Type: 
  Country: US (occurrence: US)
  Receive Date: 20121017
  Receipt Date: 20121023
  Transmission Date: 20130627
  Serious: No
  Sender: FDA-Public Use
  Company Number: US-VERTEX PHARMACEUTICAL INC.-2012-022484

PATIENT
  Age: 56 Year
  Sex: Female
  Weight: 63.49 kg

DRUGS (8)
  1. VX-950 [Suspect]
     Indication: HEPATITIS C
     Dosage: 750 mg, tid
     Route: 048
  2. RIBAVIRIN [Concomitant]
     Indication: HEPATITIS C
     Dosage: 200 mg, UNK
  3. PEGASYS [Concomitant]
     Indication: HEPATITIS C
     Dosage: 180 ?g, UNK
  4. WELLBUTRIN [Concomitant]
     Dosage: 75 mg, UNK
  5. LOSARTAN POTASSIUM [Concomitant]
     Dosage: 100 mg, UNK
  6. METFORMIN [Concomitant]
     Dosage: 850 mg, UNK
  7. ONDANSETRON [Concomitant]
     Dosage: 4mg/5ml
  8. BENADRYL                           /00000402/ [Concomitant]

REACTIONS (6)
  - Dizziness [Unknown]
  - Dry mouth [Unknown]
  - Rash generalised [Unknown]
  - Nausea [Unknown]
  - Dysgeusia [Unknown]
  - Blister [Unknown]
